FAERS Safety Report 9915097 (Version 2)
Quarter: 2014Q2

REPORT INFORMATION
  Report Type: Report from Study
  Country: DE (occurrence: DE)
  Receive Date: 20140220
  Receipt Date: 20140418
  Transmission Date: 20141212
  Serious: Yes (Life-Threatening, Hospitalization, Other)
  Sender: FDA-Public Use
  Company Number: DE-ASTRAZENECA-2014SE10794

PATIENT
  Age: 71 Year
  Sex: Male

DRUGS (8)
  1. TICAGRELOR [Suspect]
     Indication: ACUTE CORONARY SYNDROME
     Route: 048
     Dates: start: 20130830
  2. ASPIRIN [Suspect]
     Indication: ACUTE CORONARY SYNDROME
     Route: 048
     Dates: start: 20130830
  3. ASPIRIN [Suspect]
     Indication: ACUTE CORONARY SYNDROME
     Route: 048
  4. METOPROLOL SUCCINATE [Concomitant]
  5. PANTOPRAZOL [Concomitant]
  6. SIMVASTATIN [Concomitant]
  7. HYDROCHLOROTHIAZIDE [Concomitant]
  8. CANDESARTAN [Concomitant]

REACTIONS (2)
  - Drug ineffective [Recovered/Resolved]
  - Angina unstable [Recovered/Resolved]
